FAERS Safety Report 4387665-8 (Version None)
Quarter: 2004Q2

REPORT INFORMATION
  Report Type: 
  Country: None (occurrence: None)
  Receive Date: 20040625
  Receipt Date: 20040614
  Transmission Date: 20050107
  Serious: Yes (Hospitalization)
  Sender: FDA-Public Use
  Company Number: 2004040098

PATIENT
  Age: 59 Year
  Sex: Female

DRUGS (2)
  1. ZITHROMAX [Suspect]
     Indication: BRONCHITIS
     Dosage: 500 MG (250 MG, 1 IN 1 D) ORAL
     Route: 048
     Dates: start: 20040528, end: 20040530
  2. BEPRIDIL HYDROCHLORIDE MONOHYDRATE (BEPRIDIL HYDROCHLORIDE MONOHYDRATE [Concomitant]

REACTIONS (3)
  - LOSS OF CONSCIOUSNESS [None]
  - MALAISE [None]
  - SYNCOPE VASOVAGAL [None]
